FAERS Safety Report 23315857 (Version 1)
Quarter: 2023Q4

REPORT INFORMATION
  Report Type: Report from Study
  Country: CN (occurrence: CN)
  Receive Date: 20231219
  Receipt Date: 20231219
  Transmission Date: 20240109
  Serious: No
  Sender: FDA-Public Use
  Company Number: CN-PFIZER INC-PV202300202944

PATIENT
  Age: 69 Year
  Sex: Male
  Weight: 70 kg

DRUGS (2)
  1. NIRMATRELVIR\RITONAVIR [Suspect]
     Active Substance: NIRMATRELVIR\RITONAVIR
     Indication: COVID-19
     Dosage: [NIRMATRELVIR 300 MG]/ [RITONAVIR 100 MG], 2X/DAY, ROUTE: PC
     Dates: start: 20220421, end: 20220426
  2. NIRMATRELVIR\RITONAVIR [Suspect]
     Active Substance: NIRMATRELVIR\RITONAVIR
     Dosage: [NIRMATRELVIR 300 MG]/ [RITONAVIR 100 MG], 2X/DAY, ROUTE: PC
     Dates: start: 20220504, end: 20220509

REACTIONS (1)
  - Overdose [Unknown]
